FAERS Safety Report 4532912-2 (Version None)
Quarter: 2004Q4

REPORT INFORMATION
  Report Type: 
  Country: None (occurrence: None)
  Receive Date: 20041206
  Receipt Date: 20041022
  Transmission Date: 20050328
  Serious: No
  Sender: FDA-Public Use
  Company Number: USA041080860

PATIENT
  Sex: Male

DRUGS (3)
  1. CYMBALTA [Suspect]
     Indication: DEPRESSION
     Dosage: 60 MG
  2. ALLOPURINOL ^BELUPO^ (ALLOPURINOL) [Concomitant]
  3. INDOCIN [Concomitant]

REACTIONS (1)
  - BLOOD PRESSURE INCREASED [None]
